FAERS Safety Report 11451831 (Version 1)
Quarter: 2015Q3

REPORT INFORMATION
  Report Type: Spontaneous
  Country: US (occurrence: None)
  Receive Date: 20150902
  Receipt Date: 20150902
  Transmission Date: 20151125
  Serious: Yes (Other)
  Sender: FDA-Public Use
  Company Number: None

PATIENT
  Age: 46 Year
  Sex: Female
  Weight: 80 kg

DRUGS (1)
  1. EPINEPHRINE. [Suspect]
     Active Substance: EPINEPHRINE
     Indication: HYPERSENSITIVITY
     Route: 028
     Dates: start: 20150823

REACTIONS (5)
  - Product label issue [None]
  - Device malfunction [None]
  - Device physical property issue [None]
  - Injury associated with device [None]
  - Haemorrhage [None]

NARRATIVE: CASE EVENT DATE: 20150823
